FAERS Safety Report 16863155 (Version 1)
Quarter: 2019Q3

REPORT INFORMATION
  Report Type: Spontaneous
  Country: US (occurrence: US)
  Receive Date: 20190927
  Receipt Date: 20190927
  Transmission Date: 20191005
  Serious: No
  Sender: FDA-Public Use
  Company Number: US-MYLANLABS-2019M1088642

PATIENT
  Sex: Female
  Weight: 65.3 kg

DRUGS (4)
  1. IPRATROPIUM BROMIDE. [Concomitant]
     Active Substance: IPRATROPIUM BROMIDE
     Dosage: UNK
  2. BUDESONIDE. [Concomitant]
     Active Substance: BUDESONIDE
     Dosage: UNK
  3. LEVALBUTEROL INHALATION SOLUTION USP (CONCENTRATE) [Suspect]
     Active Substance: LEVALBUTEROL
     Indication: CHRONIC OBSTRUCTIVE PULMONARY DISEASE
     Dosage: UNK UNK, TID
  4. LEVALBUTEROL INHALATION SOLUTION USP (CONCENTRATE) [Suspect]
     Active Substance: LEVALBUTEROL
     Indication: EMPHYSEMA

REACTIONS (2)
  - Product label issue [Unknown]
  - Wrong technique in product usage process [Not Recovered/Not Resolved]
